FAERS Safety Report 12788142 (Version 1)
Quarter: 2016Q3

REPORT INFORMATION
  Report Type: Spontaneous
  Country: US (occurrence: US)
  Receive Date: 20160928
  Receipt Date: 20160928
  Transmission Date: 20161109
  Serious: No
  Sender: FDA-Public Use
  Company Number: US-TEVA-637354USA

PATIENT
  Sex: Female
  Weight: 52.66 kg

DRUGS (1)
  1. SPRINTEC [Suspect]
     Active Substance: ETHINYL ESTRADIOL\NORGESTIMATE
     Indication: CONTRACEPTION
     Route: 065
     Dates: start: 20160106, end: 20160213

REACTIONS (3)
  - Urticaria [Unknown]
  - Eyelid oedema [Unknown]
  - Hypersensitivity [Unknown]
